FAERS Safety Report 18873215 (Version 1)
Quarter: 2021Q1

REPORT INFORMATION
  Report Type: Spontaneous
  Country: US (occurrence: US)
  Receive Date: 20210209
  Receipt Date: 20210209
  Transmission Date: 20210420
  Serious: Yes (Life-Threatening)
  Sender: FDA-Public Use
  Company Number: None

PATIENT
  Age: 88 Year
  Sex: Male
  Weight: 85.73 kg

DRUGS (2)
  1. DONEPEZIL (DONEPEZIL HCL 10MG TAB) [Suspect]
     Active Substance: DONEPEZIL HYDROCHLORIDE
     Indication: COGNITIVE DISORDER
     Route: 048
     Dates: start: 20200915, end: 20201124
  2. DONEPEZIL (DONEPEZIL HCL 10MG TAB) [Suspect]
     Active Substance: DONEPEZIL HYDROCHLORIDE
     Indication: DEMENTIA
     Route: 048
     Dates: start: 20200915, end: 20201124

REACTIONS (7)
  - Vomiting [None]
  - Syncope [None]
  - Chest discomfort [None]
  - Hyperhidrosis [None]
  - Nausea [None]
  - Bradycardia [None]
  - Tremor [None]

NARRATIVE: CASE EVENT DATE: 20201124
